FAERS Safety Report 8163102-2 (Version None)
Quarter: 2012Q1

REPORT INFORMATION
  Report Type: 
  Country: None (occurrence: None)
  Receive Date: 20120224
  Receipt Date: 20120217
  Transmission Date: 20120608
  Serious: Yes (Other)
  Sender: FDA-Public Use
  Company Number: BE-GLAXOSMITHKLINE-B0783643A

PATIENT

DRUGS (4)
  1. PLAVIX [Concomitant]
  2. ARIXTRA [Suspect]
     Indication: STENT PLACEMENT
     Route: 065
  3. ACETYLSALICYLIC ACID SRT [Concomitant]
  4. HEPARIN [Concomitant]

REACTIONS (1)
  - THROMBOSIS IN DEVICE [None]
